FAERS Safety Report 18466466 (Version 9)
Quarter: 2021Q3

REPORT INFORMATION
  Report Type: Report from Study
  Country: CN (occurrence: CN)
  Receive Date: 20201104
  Receipt Date: 20210811
  Transmission Date: 20211014
  Serious: Yes (Hospitalization)
  Sender: FDA-Public Use
  Company Number: CN-ROCHE-2703472

PATIENT
  Age: 64 Year
  Sex: Male
  Weight: 84.5 kg

DRUGS (94)
  1. SODIUM BICARBONATE. [Concomitant]
     Active Substance: SODIUM BICARBONATE
     Route: 042
     Dates: start: 20201203, end: 20201206
  2. DIISOPROPYLAMINE DICHLOROACETATE [Concomitant]
     Route: 042
     Dates: start: 20201203, end: 20201206
  3. POTASSIUM CITRATE. [Concomitant]
     Active Substance: POTASSIUM CITRATE
     Dosage: DOSE: 1 OTHER
     Route: 048
     Dates: start: 20201022, end: 20201027
  4. TRIMETAZIDINE DIHYDROCHLORIDE [Concomitant]
     Active Substance: TRIMETAZIDINE DIHYDROCHLORIDE
     Route: 048
     Dates: start: 20201226, end: 20201228
  5. ONDANSETRON [Concomitant]
     Active Substance: ONDANSETRON
     Route: 042
     Dates: start: 20201226, end: 20201226
  6. MESNA. [Concomitant]
     Active Substance: MESNA
     Route: 042
     Dates: start: 20210205, end: 20210205
  7. MECAPEGFILGRASTIM [Concomitant]
     Active Substance: MECAPEGFILGRASTIM
     Route: 058
     Dates: start: 20210118, end: 20210118
  8. METHOTREXATE. [Concomitant]
     Active Substance: METHOTREXATE
     Route: 037
     Dates: start: 20210207, end: 20210207
  9. DEXAMETHASONE. [Concomitant]
     Active Substance: DEXAMETHASONE
     Route: 037
     Dates: start: 20210207, end: 20210207
  10. CYCLOPHOSPHAMIDE. [Suspect]
     Active Substance: CYCLOPHOSPHAMIDE
     Indication: DIFFUSE LARGE B-CELL LYMPHOMA
     Dosage: DATE OF MOST RECENT DOSE OF CYCLOPHOSPHAMIDE PRIOR TO SAE ONSET 23/OCT/2020?DOSE OF LAST CYCLOPHOSPH
     Route: 042
     Dates: start: 20201023
  11. PANTOPRAZOLE [Concomitant]
     Active Substance: PANTOPRAZOLE
     Route: 042
     Dates: start: 20201022, end: 20201027
  12. DIISOPROPYLAMINE DICHLOROACETATE [Concomitant]
     Route: 042
     Dates: start: 20201022, end: 20201025
  13. DIISOPROPYLAMINE DICHLOROACETATE [Concomitant]
     Route: 042
     Dates: start: 20201114, end: 20201116
  14. POTASSIUM CITRATE. [Concomitant]
     Active Substance: POTASSIUM CITRATE
     Dosage: DOSE: 1 OTHER
     Route: 048
     Dates: start: 20201203, end: 20201207
  15. AMLODIPINE BESYLATE. [Concomitant]
     Active Substance: AMLODIPINE BESYLATE
     Route: 048
     Dates: start: 2018, end: 20201026
  16. NIFEDIPINE. [Concomitant]
     Active Substance: NIFEDIPINE
     Dosage: CONTROLLED RELEASE
     Route: 048
     Dates: start: 20201027
  17. ONDANSETRON [Concomitant]
     Active Substance: ONDANSETRON
     Route: 042
     Dates: start: 20210205, end: 20210205
  18. DEXRAZOXANE. [Concomitant]
     Active Substance: DEXRAZOXANE
     Route: 042
     Dates: start: 20201114, end: 20201114
  19. DEXRAZOXANE. [Concomitant]
     Active Substance: DEXRAZOXANE
     Route: 042
     Dates: start: 20210115, end: 20210115
  20. MESNA. [Concomitant]
     Active Substance: MESNA
     Route: 042
     Dates: start: 20201226, end: 20201226
  21. DIPHENHYDRAMINE HYDROCHLORIDE. [Concomitant]
     Active Substance: DIPHENHYDRAMINE HYDROCHLORIDE
     Route: 048
     Dates: start: 20201022, end: 20201023
  22. DIPHENHYDRAMINE HYDROCHLORIDE. [Concomitant]
     Active Substance: DIPHENHYDRAMINE HYDROCHLORIDE
     Route: 048
     Dates: start: 20201203, end: 20201204
  23. AESCUVEN FORTE [Concomitant]
     Active Substance: HERBALS
     Indication: POLYURIA
     Route: 048
     Dates: start: 2018, end: 20201010
  24. OMEPRAZOLE. [Concomitant]
     Active Substance: OMEPRAZOLE
     Route: 042
     Dates: start: 20210204, end: 20210207
  25. SODIUM BICARBONATE. [Concomitant]
     Active Substance: SODIUM BICARBONATE
     Route: 042
     Dates: start: 20201225, end: 20201227
  26. DIISOPROPYLAMINE DICHLOROACETATE [Concomitant]
     Route: 042
     Dates: start: 20201226, end: 20201227
  27. DIISOPROPYLAMINE DICHLOROACETATE [Concomitant]
     Route: 042
     Dates: start: 20210205, end: 20210206
  28. POTASSIUM CITRATE. [Concomitant]
     Active Substance: POTASSIUM CITRATE
     Dosage: DOSE: 1 OTHER
     Route: 048
     Dates: start: 20201114, end: 20201116
  29. DEXRAZOXANE. [Concomitant]
     Active Substance: DEXRAZOXANE
     Route: 042
     Dates: start: 20201204, end: 20201204
  30. DEXRAZOXANE. [Concomitant]
     Active Substance: DEXRAZOXANE
     Route: 042
     Dates: start: 20210205, end: 20210205
  31. MESNA. [Concomitant]
     Active Substance: MESNA
     Route: 042
     Dates: start: 20201114, end: 20201114
  32. TORASEMIDE [Concomitant]
     Active Substance: TORSEMIDE
     Route: 042
     Dates: start: 20201023, end: 20201023
  33. MECAPEGFILGRASTIM [Concomitant]
     Active Substance: MECAPEGFILGRASTIM
     Route: 058
     Dates: start: 20201116, end: 20201116
  34. MECAPEGFILGRASTIM [Concomitant]
     Active Substance: MECAPEGFILGRASTIM
     Route: 058
     Dates: start: 20201228, end: 20201228
  35. OMEPRAZOLE. [Concomitant]
     Active Substance: OMEPRAZOLE
     Route: 042
     Dates: start: 20210114, end: 20210118
  36. DEXAMETHASONE. [Concomitant]
     Active Substance: DEXAMETHASONE
     Route: 037
     Dates: start: 20210319, end: 20210319
  37. POLATUZUMAB VEDOTIN. [Suspect]
     Active Substance: POLATUZUMAB VEDOTIN
     Indication: DIFFUSE LARGE B-CELL LYMPHOMA
     Dosage: DATE OF MOST RECENT DOSE (152.1 MG) OF POLATUZUMAB VEDOTIN PRIOR TO SAE ONSET 23 OCT 2020
     Route: 042
     Dates: start: 20201023
  38. PLACEBO [Suspect]
     Active Substance: UNSPECIFIED INGREDIENT
     Indication: DIFFUSE LARGE B-CELL LYMPHOMA
     Dosage: DATE OF MOST RECENT DOSE OF PLACEBO PRIOR TO SAE ONSET 23/OCT/2020.
     Route: 042
     Dates: start: 20201023
  39. RITUXIMAB. [Suspect]
     Active Substance: RITUXIMAB
     Indication: DIFFUSE LARGE B-CELL LYMPHOMA
     Dosage: DATE OF MOST RECENT DOSE OF RITUXIMAB PRIOR TO SAE ONSET: 22/OCT/2020?LAST DOSE OF RITUXIMAB 757.5 M
     Route: 042
     Dates: start: 20201022
  40. DOXORUBICIN [Suspect]
     Active Substance: DOXORUBICIN
     Indication: DIFFUSE LARGE B-CELL LYMPHOMA
     Dosage: DATE OF MOST RECENT DOSE OF DOXORUBICIN PRIOR TO SAE ONSET 23/OCT/2020?LAST DOSE OF DOXORUBICIN 101
     Route: 042
     Dates: start: 20201023
  41. PREDNISONE. [Suspect]
     Active Substance: PREDNISONE
     Indication: DIFFUSE LARGE B-CELL LYMPHOMA
     Dosage: ON DAYS 1?5 OF EVERY 21?DAY CYCLE FOR 6 CYCLES?DATE OF MOST RECENT DOSE OF PREDNISONE 26/OCT/2020?DO
     Route: 048
     Dates: start: 20201022
  42. COMPOUND CHLORHEXIDINE GARGLE [Concomitant]
     Dosage: LIQUID
     Route: 048
     Dates: start: 20201022
  43. SODIUM BICARBONATE. [Concomitant]
     Active Substance: SODIUM BICARBONATE
     Route: 042
     Dates: start: 20201114, end: 20201116
  44. DIISOPROPYLAMINE DICHLOROACETATE [Concomitant]
     Route: 042
     Dates: start: 20210114, end: 20210116
  45. POTASSIUM CITRATE. [Concomitant]
     Active Substance: POTASSIUM CITRATE
     Dosage: DOSE: 1 OTHER
     Route: 048
     Dates: start: 20210114, end: 20210118
  46. POTASSIUM CITRATE. [Concomitant]
     Active Substance: POTASSIUM CITRATE
     Dosage: DOSE: 1 OTHER
     Route: 048
     Dates: start: 20210205, end: 20210207
  47. TRIMETAZIDINE DIHYDROCHLORIDE [Concomitant]
     Active Substance: TRIMETAZIDINE DIHYDROCHLORIDE
     Route: 048
     Dates: start: 20201022, end: 20201027
  48. TRIMETAZIDINE DIHYDROCHLORIDE [Concomitant]
     Active Substance: TRIMETAZIDINE DIHYDROCHLORIDE
     Route: 048
     Dates: start: 20201114, end: 20201116
  49. TRIMETAZIDINE DIHYDROCHLORIDE [Concomitant]
     Active Substance: TRIMETAZIDINE DIHYDROCHLORIDE
     Route: 048
     Dates: start: 20210114, end: 20210118
  50. METOPROLOL. [Concomitant]
     Active Substance: METOPROLOL
     Route: 048
     Dates: start: 20201027
  51. MESNA. [Concomitant]
     Active Substance: MESNA
     Route: 042
     Dates: start: 20201204, end: 20201204
  52. ACETAMINOPHEN. [Concomitant]
     Active Substance: ACETAMINOPHEN
     Route: 048
     Dates: start: 20210204, end: 20210205
  53. DIPHENHYDRAMINE HYDROCHLORIDE. [Concomitant]
     Active Substance: DIPHENHYDRAMINE HYDROCHLORIDE
     Route: 048
     Dates: start: 20210114, end: 20210115
  54. DIPHENHYDRAMINE HYDROCHLORIDE. [Concomitant]
     Active Substance: DIPHENHYDRAMINE HYDROCHLORIDE
     Route: 048
     Dates: start: 20210204, end: 20210205
  55. OMEPRAZOLE. [Concomitant]
     Active Substance: OMEPRAZOLE
     Route: 042
     Dates: start: 20201225, end: 20201228
  56. METHOTREXATE. [Concomitant]
     Active Substance: METHOTREXATE
     Route: 037
     Dates: start: 20210118, end: 20210118
  57. METHOTREXATE. [Concomitant]
     Active Substance: METHOTREXATE
     Route: 037
     Dates: start: 20210319, end: 20210319
  58. PANTOPRAZOLE [Concomitant]
     Active Substance: PANTOPRAZOLE
     Route: 042
     Dates: start: 20201114, end: 20201116
  59. TRIMETAZIDINE DIHYDROCHLORIDE [Concomitant]
     Active Substance: TRIMETAZIDINE DIHYDROCHLORIDE
     Route: 048
     Dates: start: 20210205, end: 20210207
  60. LOSARTAN POTASSIUM AND HYDROCHLOROTHIAZIDE [Concomitant]
     Active Substance: HYDROCHLOROTHIAZIDE\LOSARTAN POTASSIUM
     Route: 048
     Dates: start: 2018
  61. ONDANSETRON [Concomitant]
     Active Substance: ONDANSETRON
     Route: 042
     Dates: start: 20201204, end: 20201204
  62. DEXRAZOXANE. [Concomitant]
     Active Substance: DEXRAZOXANE
     Route: 042
     Dates: start: 20201023, end: 20201023
  63. DEXRAZOXANE. [Concomitant]
     Active Substance: DEXRAZOXANE
     Route: 042
     Dates: start: 20201226, end: 20201226
  64. DIPHENHYDRAMINE HYDROCHLORIDE. [Concomitant]
     Active Substance: DIPHENHYDRAMINE HYDROCHLORIDE
     Route: 048
     Dates: start: 20201225, end: 20201226
  65. INSULIN [Concomitant]
     Active Substance: INSULIN NOS
     Route: 042
     Dates: start: 20201021, end: 20201025
  66. DEXAMETHASONE. [Concomitant]
     Active Substance: DEXAMETHASONE
     Route: 037
     Dates: start: 20210118, end: 20210118
  67. SODIUM BICARBONATE. [Concomitant]
     Active Substance: SODIUM BICARBONATE
     Route: 042
     Dates: start: 20201021, end: 20201025
  68. POTASSIUM CITRATE. [Concomitant]
     Active Substance: POTASSIUM CITRATE
     Dosage: DOSE: 1 OTHER
     Route: 048
     Dates: start: 20201226, end: 20201228
  69. MESNA. [Concomitant]
     Active Substance: MESNA
     Route: 042
     Dates: start: 20201023, end: 20201023
  70. MESNA. [Concomitant]
     Active Substance: MESNA
     Route: 042
     Dates: start: 20210115, end: 20210115
  71. ACETAMINOPHEN. [Concomitant]
     Active Substance: ACETAMINOPHEN
     Route: 048
     Dates: start: 20201225, end: 20201226
  72. ACETAMINOPHEN. [Concomitant]
     Active Substance: ACETAMINOPHEN
     Route: 048
     Dates: start: 20210114, end: 20210115
  73. DIPHENHYDRAMINE HYDROCHLORIDE. [Concomitant]
     Active Substance: DIPHENHYDRAMINE HYDROCHLORIDE
     Route: 048
     Dates: start: 20201113, end: 20201114
  74. DIPHENHYDRAMINE HYDROCHLORIDE. [Concomitant]
     Active Substance: DIPHENHYDRAMINE HYDROCHLORIDE
     Route: 048
     Dates: start: 20210318, end: 20210318
  75. INSULIN [Concomitant]
     Active Substance: INSULIN NOS
     Route: 042
     Dates: start: 20201114, end: 20201114
  76. MECAPEGFILGRASTIM [Concomitant]
     Active Substance: MECAPEGFILGRASTIM
     Route: 058
     Dates: start: 20201207, end: 20201207
  77. TRIMETAZIDINE DIHYDROCHLORIDE [Concomitant]
     Active Substance: TRIMETAZIDINE DIHYDROCHLORIDE
     Route: 048
     Dates: start: 20201203, end: 20201207
  78. ONDANSETRON [Concomitant]
     Active Substance: ONDANSETRON
     Route: 042
     Dates: start: 20201023, end: 20201023
  79. ONDANSETRON [Concomitant]
     Active Substance: ONDANSETRON
     Route: 042
     Dates: start: 20201114, end: 20201114
  80. ACETAMINOPHEN. [Concomitant]
     Active Substance: ACETAMINOPHEN
     Route: 048
     Dates: start: 20201203, end: 20201204
  81. ACETAMINOPHEN. [Concomitant]
     Active Substance: ACETAMINOPHEN
     Route: 048
     Dates: start: 20210318, end: 20210318
  82. MECAPEGFILGRASTIM [Concomitant]
     Active Substance: MECAPEGFILGRASTIM
     Route: 058
     Dates: start: 20201026, end: 20201026
  83. MECOBALAMIN [Concomitant]
     Active Substance: METHYLCOBALAMIN
     Route: 048
     Dates: start: 20210116
  84. IODOPHOR [Concomitant]
     Active Substance: POVIDONE-IODINE
     Dosage: DISINFECTANT
     Route: 067
     Dates: start: 20201022
  85. PANTOPRAZOLE [Concomitant]
     Active Substance: PANTOPRAZOLE
     Route: 042
     Dates: start: 20201203, end: 20201207
  86. SODIUM BICARBONATE. [Concomitant]
     Active Substance: SODIUM BICARBONATE
     Route: 042
     Dates: start: 20210114, end: 20210116
  87. SODIUM BICARBONATE. [Concomitant]
     Active Substance: SODIUM BICARBONATE
     Route: 042
     Dates: start: 20210205, end: 20210206
  88. ONDANSETRON [Concomitant]
     Active Substance: ONDANSETRON
     Route: 042
     Dates: start: 20210115, end: 20210115
  89. ACETAMINOPHEN. [Concomitant]
     Active Substance: ACETAMINOPHEN
     Route: 048
     Dates: start: 20201022, end: 20201023
  90. ACETAMINOPHEN. [Concomitant]
     Active Substance: ACETAMINOPHEN
     Route: 048
     Dates: start: 20201113, end: 20201114
  91. ACETAMINOPHEN. [Concomitant]
     Active Substance: ACETAMINOPHEN
     Route: 048
     Dates: start: 20210225, end: 20210225
  92. DIPHENHYDRAMINE HYDROCHLORIDE. [Concomitant]
     Active Substance: DIPHENHYDRAMINE HYDROCHLORIDE
     Route: 048
     Dates: start: 20210225, end: 20210225
  93. INSULIN [Concomitant]
     Active Substance: INSULIN NOS
     Route: 042
     Dates: start: 20201204, end: 20201204
  94. MECAPEGFILGRASTIM [Concomitant]
     Active Substance: MECAPEGFILGRASTIM
     Route: 058
     Dates: start: 20210207, end: 20210207

REACTIONS (1)
  - Pathological fracture [Recovered/Resolved]

NARRATIVE: CASE EVENT DATE: 20201025
